FAERS Safety Report 15585715 (Version 4)
Quarter: 2019Q1

REPORT INFORMATION
  Report Type: Spontaneous
  Country: FR (occurrence: FR)
  Receive Date: 20181105
  Receipt Date: 20190103
  Transmission Date: 20190417
  Serious: Yes (Hospitalization)
  Sender: FDA-Public Use
  Company Number: FR-PFIZER INC-2018443663

PATIENT
  Age: 40 Year
  Sex: Female
  Weight: 59 kg

DRUGS (9)
  1. RIVOTRIL [Suspect]
     Active Substance: CLONAZEPAM
     Dosage: 20 GTT, SINGLE
     Route: 048
     Dates: start: 20181006, end: 20181006
  2. LAMICTAL [Suspect]
     Active Substance: LAMOTRIGINE
     Dosage: 500 MG, SINGLE
     Route: 048
     Dates: start: 20181006, end: 20181006
  3. LYRICA [Suspect]
     Active Substance: PREGABALIN
     Dosage: UNK UNK, SINGLE
     Route: 048
     Dates: start: 20181006, end: 20181006
  4. TERALITHE [Suspect]
     Active Substance: LITHIUM CARBONATE
     Dosage: 2 G, SINGLE
     Route: 048
     Dates: start: 20181006, end: 20181006
  5. FLUOXETINE HYDROCHLORIDE. [Concomitant]
     Active Substance: FLUOXETINE HYDROCHLORIDE
     Dosage: UNK
  6. XEROQUEL [Suspect]
     Active Substance: QUETIAPINE FUMARATE
     Dosage: 600 MG, SINGLE
     Route: 048
     Dates: start: 20181006, end: 20181006
  7. TEMESTA [LORAZEPAM] [Concomitant]
     Active Substance: LORAZEPAM
     Dosage: UNK
  8. PROPRANOLOL [Concomitant]
     Active Substance: PROPRANOLOL HYDROCHLORIDE
     Dosage: UNK
  9. ZOPICLONE [Concomitant]
     Active Substance: ZOPICLONE
     Dosage: UNK

REACTIONS (4)
  - Toxicity to various agents [Unknown]
  - Antipsychotic drug level increased [Recovered/Resolved]
  - Somnolence [Recovered/Resolved]
  - Headache [Recovered/Resolved]

NARRATIVE: CASE EVENT DATE: 20181006
